FAERS Safety Report 8960505 (Version 2)
Quarter: 2013Q1

REPORT INFORMATION
  Report Type: Spontaneous
  Country: IT (occurrence: None)
  Receive Date: 20121203
  Receipt Date: 20121227
  Transmission Date: 20140127
  Serious: Yes (Hospitalization)
  Sender: FDA-Public Use
  Company Number: 2012-004142

PATIENT
  Age: 72 Year
  Sex: Female

DRUGS (2)
  1. ACTONEL [Suspect]
     Indication: OSTEOPOROSIS
     Route: 048
     Dates: start: 20120906, end: 20120906
  2. DIBASE (COLECALCIFEROL) [Concomitant]

REACTIONS (3)
  - Presyncope [None]
  - Vertigo [None]
  - Head injury [None]
